FAERS Safety Report 5318191-7 (Version None)
Quarter: 2007Q2

REPORT INFORMATION
  Report Type: 
  Country: None (occurrence: None)
  Receive Date: 20070507
  Receipt Date: 20070426
  Transmission Date: 20071010
  Serious: Yes (Other)
  Sender: FDA-Public Use
  Company Number: US-PFIZER INC-2006138227

PATIENT
  Sex: Female
  Weight: 93 kg

DRUGS (2)
  1. SUTENT [Suspect]
  2. DRUG, UNSPECIFIED [Concomitant]

REACTIONS (4)
  - ABDOMINAL DISTENSION [None]
  - CONSTIPATION [None]
  - FLATULENCE [None]
  - HYPERTENSION [None]
